FAERS Safety Report 7205466-X (Version None)
Quarter: 2010Q4

REPORT INFORMATION
  Report Type: 
  Country: None (occurrence: None)
  Receive Date: 20101231
  Receipt Date: 20101222
  Transmission Date: 20110411
  Serious: Yes (Other)
  Sender: FDA-Public Use
  Company Number: PHEH2008US11032

PATIENT
  Sex: Male

DRUGS (2)
  1. TRILEPTAL [Suspect]
     Dosage: 600 MG, UNK
  2. TRILEPTAL [Suspect]
     Dosage: 1200 MG, DAILY

REACTIONS (4)
  - LENTIGO MALIGNA STAGE UNSPECIFIED [None]
  - RASH [None]
  - STOMATITIS [None]
  - SURGERY [None]
